FAERS Safety Report 7153510-0 (Version None)
Quarter: 2010Q4

REPORT INFORMATION
  Report Type: 
  Country: None (occurrence: None)
  Receive Date: 20101213
  Receipt Date: 20101207
  Transmission Date: 20110411
  Serious: Yes (Hospitalization)
  Sender: FDA-Public Use
  Company Number: B0688516A

PATIENT
  Age: 14 Month
  Sex: Male

DRUGS (1)
  1. AUGMENTIN [Suspect]
     Dosage: 3.5ML PER DAY
     Route: 048
     Dates: start: 20101206, end: 20101206

REACTIONS (1)
  - RASH [None]
